FAERS Safety Report 13959607 (Version 1)
Quarter: 2017Q3

REPORT INFORMATION
  Report Type: Report from Study
  Country: IN (occurrence: IN)
  Receive Date: 20170911
  Receipt Date: 20170911
  Transmission Date: 20171128
  Serious: Yes (Other)
  Sender: FDA-Public Use
  Company Number: IN-REGENERON PHARMACEUTICALS, INC.-2017-21640

PATIENT

DRUGS (1)
  1. EYLEA [Suspect]
     Active Substance: AFLIBERCEPT
     Indication: POLYPOIDAL CHOROIDAL VASCULOPATHY
     Dosage: 2 MG/0.05 ML TOTAL OF 3 EYLEA INJECTIONS
     Route: 031

REACTIONS (2)
  - Retinal oedema [Not Recovered/Not Resolved]
  - Drug ineffective [Unknown]
